FAERS Safety Report 8337700-7 (Version None)
Quarter: 2012Q2

REPORT INFORMATION
  Report Type: 
  Country: None (occurrence: None)
  Receive Date: 20120504
  Receipt Date: 20120423
  Transmission Date: 20120825
  Serious: Yes (Hospitalization)
  Sender: FDA-Public Use
  Company Number: JP-ROCHE-1061842

PATIENT
  Age: 46 Year
  Sex: Male

DRUGS (1)
  1. AVASTIN [Suspect]
     Indication: RECTAL CANCER
     Route: 041
     Dates: start: 20071221, end: 20080620

REACTIONS (1)
  - IMPAIRED HEALING [None]
